FAERS Safety Report 26023960 (Version 1)
Quarter: 2025Q4

REPORT INFORMATION
  Report Type: Spontaneous
  Country: KR (occurrence: KR)
  Receive Date: 20251111
  Receipt Date: 20251111
  Transmission Date: 20260118
  Serious: Yes (Hospitalization)
  Sender: BOEHRINGER INGELHEIM
  Company Number: KR-BoehringerIngelheim-2025-BI-106714

PATIENT
  Age: 64 Year
  Sex: Female
  Weight: 66 kg

DRUGS (1)
  1. JARDIANCE [Suspect]
     Active Substance: EMPAGLIFLOZIN
     Indication: Malignant neoplasm of ampulla of Vater
     Dates: start: 20210921, end: 20210929

REACTIONS (3)
  - Dyspnoea [Recovered/Resolved]
  - Hypotension [Recovered/Resolved]
  - Acidosis [Recovered/Resolved]

NARRATIVE: CASE EVENT DATE: 20210929
